FAERS Safety Report 6584548-X (Version None)
Quarter: 2010Q1

REPORT INFORMATION
  Report Type: 
  Country: None (occurrence: None)
  Receive Date: 20100213
  Receipt Date: 20100213
  Transmission Date: 20100710
  Serious: Yes (Other)
  Sender: FDA-Public Use
  Company Number: None

PATIENT
  Age: 87 Year
  Sex: Female
  Weight: 90.7194 kg

DRUGS (8)
  1. REGLAN [Suspect]
     Indication: ASCITES
     Dosage: REGLAN  Q4? - 8?  5MG
  2. REGLAN [Suspect]
     Indication: HEPATOMEGALY
     Dosage: REGLAN  Q4? - 8?  5MG
  3. REGLAN [Suspect]
     Indication: NAUSEA
     Dosage: REGLAN  Q4? - 8?  5MG
  4. REGLAN [Suspect]
     Indication: NEOPLASM MALIGNANT
     Dosage: REGLAN  Q4? - 8?  5MG
  5. REGLAN [Suspect]
     Indication: PAIN
     Dosage: REGLAN  Q4? - 8?  5MG
  6. LORAZEPAM [Concomitant]
  7. THIAMINE [Concomitant]
  8. HALDOL [Suspect]

REACTIONS (8)
  - CARDIAC FAILURE ACUTE [None]
  - CHOKING [None]
  - DYSPNOEA [None]
  - HEPATIC PAIN [None]
  - HYPERCALCAEMIA [None]
  - LUNG DISORDER [None]
  - NEUROLEPTIC MALIGNANT SYNDROME [None]
  - PARKINSONISM [None]
